FAERS Safety Report 7889351-6 (Version None)
Quarter: 2011Q4

REPORT INFORMATION
  Report Type: 
  Country: None (occurrence: None)
  Receive Date: 20111103
  Receipt Date: 20100805
  Transmission Date: 20120403
  Serious: Yes (Other)
  Sender: FDA-Public Use
  Company Number: US-BAYER-201029906NA

PATIENT
  Sex: Female

DRUGS (5)
  1. PREDNISONE [Concomitant]
  2. CIPROFLOXACIN [Suspect]
     Indication: SINUSITIS
     Dosage: UNK
     Route: 048
     Dates: start: 20040101
  3. ANTIDEPRESSANTS [Concomitant]
  4. AVELOX [Suspect]
     Indication: PRODUCT USED FOR UNKNOWN INDICATION
  5. DECONGESTANTS [Concomitant]

REACTIONS (4)
  - SWELLING FACE [None]
  - HALLUCINATION [None]
  - PRURITUS [None]
  - PARAESTHESIA [None]
